FAERS Safety Report 10850122 (Version 1)
Quarter: 2015Q1

REPORT INFORMATION
  Report Type: Spontaneous
  Country: US (occurrence: US)
  Receive Date: 20150221
  Receipt Date: 20150221
  Transmission Date: 20150721
  Serious: Yes (Death)
  Sender: FDA-Public Use
  Company Number: US-BANPHARM-20153487

PATIENT
  Age: 59 Year
  Sex: Female

DRUGS (4)
  1. FENTANYL (TRANSDERMAL) [Suspect]
     Active Substance: FENTANYL
  2. COCAINE [Suspect]
     Active Substance: COCAINE
  3. NAPROXEN UNKNOWN PRODUCT [Suspect]
     Active Substance: NAPROXEN
  4. FENTANYL. [Suspect]
     Active Substance: FENTANYL

REACTIONS (2)
  - Drug abuse [None]
  - Death [Fatal]
